FAERS Safety Report 21373214 (Version 4)
Quarter: 2023Q2

REPORT INFORMATION
  Report Type: Spontaneous
  Country: US (occurrence: US)
  Receive Date: 20220924
  Receipt Date: 20230628
  Transmission Date: 20230722
  Serious: No
  Sender: FDA-Public Use
  Company Number: US-CTI BIOPHARMA-2022US02998

PATIENT

DRUGS (11)
  1. VONJO [Suspect]
     Active Substance: PACRITINIB
     Indication: Myelofibrosis
     Dosage: 200 MILLIGRAM, BID
     Dates: start: 20220719
  2. VONJO [Suspect]
     Active Substance: PACRITINIB
     Dosage: 200 MILLIGRAM, BID
     Route: 048
     Dates: start: 20220719
  3. PHENETICILLIN [Concomitant]
     Active Substance: PHENETICILLIN
  4. COENZYME Q10 [Concomitant]
     Active Substance: DIETARY SUPPLEMENT\UBIDECARENONE
  5. VITAMIN B12 [Concomitant]
     Active Substance: CYANOCOBALAMIN
  6. ULORIC [Concomitant]
     Active Substance: FEBUXOSTAT
  7. CENTRUM SILVER [ASCORBIC ACID;BETACAROTENE;BIOTIN;CALCIUM PHOSPHATE;CH [Concomitant]
  8. MELATONIN [Concomitant]
     Active Substance: MELATONIN
  9. PANTOPRAZOLE [Concomitant]
     Active Substance: PANTOPRAZOLE
  10. PROPRANOLOL [Concomitant]
     Active Substance: PROPRANOLOL HYDROCHLORIDE
  11. VITAMIN B [Concomitant]
     Active Substance: VITAMIN B

REACTIONS (20)
  - Fatigue [Unknown]
  - Constipation [Unknown]
  - Decreased appetite [Unknown]
  - Platelet count increased [Unknown]
  - Oral pain [Unknown]
  - Oropharyngeal pain [Recovering/Resolving]
  - Fall [Unknown]
  - Contusion [Unknown]
  - Splenomegaly [Unknown]
  - Tooth abscess [Unknown]
  - Depressed mood [Unknown]
  - Discomfort [Unknown]
  - Nasopharyngitis [Unknown]
  - Balance disorder [Unknown]
  - Ultrasound liver abnormal [Unknown]
  - Diarrhoea [Unknown]
  - Dizziness [Unknown]
  - Nausea [Unknown]
  - Platelet count abnormal [Unknown]
  - Cough [Unknown]

NARRATIVE: CASE EVENT DATE: 20220701
